FAERS Safety Report 7904053-5 (Version None)
Quarter: 2011Q4

REPORT INFORMATION
  Report Type: 
  Country: None (occurrence: None)
  Receive Date: 20111109
  Receipt Date: 20111107
  Transmission Date: 20120403
  Serious: Yes (Other)
  Sender: FDA-Public Use
  Company Number: US-PFIZER INC-2011272355

PATIENT
  Sex: Female

DRUGS (2)
  1. SERTRALINE HYDROCHLORIDE [Suspect]
     Dosage: 100 MG, DAILY
  2. SERTRALINE HYDROCHLORIDE [Suspect]
     Dosage: 100 MG DAILY
     Dates: start: 20110101

REACTIONS (2)
  - HYPOAESTHESIA [None]
  - PARAESTHESIA [None]
